FAERS Safety Report 16662377 (Version 2)
Quarter: 2020Q1

REPORT INFORMATION
  Report Type: Report from Study
  Country: US (occurrence: US)
  Receive Date: 20190802
  Receipt Date: 20200129
  Transmission Date: 20200409
  Serious: No
  Sender: FDA-Public Use
  Company Number: US-EXELIXIS-CABO-18018001

PATIENT
  Age: 63 Year
  Sex: Male

DRUGS (20)
  1. CABOMETYX [Suspect]
     Active Substance: CABOZANTINIB S-MALATE
     Indication: RENAL CANCER
     Dosage: 60 MG, QD
     Route: 048
     Dates: start: 20181218
  2. METOPROLOL SUCCINATE. [Concomitant]
     Active Substance: METOPROLOL SUCCINATE
  3. ONDANSETRON [Concomitant]
     Active Substance: ONDANSETRON
  4. PREDNISONE. [Concomitant]
     Active Substance: PREDNISONE
  5. BENZONATATE. [Concomitant]
     Active Substance: BENZONATATE
  6. LISINOPRIL. [Concomitant]
     Active Substance: LISINOPRIL
  7. PANTOPRAZOL [Concomitant]
     Active Substance: PANTOPRAZOLE SODIUM
  8. ZOLPIDEM [Concomitant]
     Active Substance: ZOLPIDEM TARTRATE
  9. ENOXAPARIN [Concomitant]
     Active Substance: ENOXAPARIN
  10. FUROSEMIDE. [Concomitant]
     Active Substance: FUROSEMIDE
  11. LORAZEPAM. [Concomitant]
     Active Substance: LORAZEPAM
  12. MEGESTROL ACETATE. [Concomitant]
     Active Substance: MEGESTROL ACETATE
  13. CREON [Concomitant]
     Active Substance: PANCRELIPASE AMYLASE\PANCRELIPASE LIPASE\PANCRELIPASE PROTEASE
  14. ROSUVASTATIN. [Concomitant]
     Active Substance: ROSUVASTATIN
  15. TOLTERODINE [Concomitant]
     Active Substance: TOLTERODINE
  16. CALCIUM [Concomitant]
     Active Substance: CALCIUM
  17. ALFUZOSIN [Concomitant]
     Active Substance: ALFUZOSIN
  18. GABAPENTIN. [Concomitant]
     Active Substance: GABAPENTIN
  19. MAGNESIUM [Concomitant]
     Active Substance: MAGNESIUM
  20. ZOFRAN [Concomitant]
     Active Substance: ONDANSETRON HYDROCHLORIDE

REACTIONS (4)
  - Hypertension [Unknown]
  - Nausea [Unknown]
  - Rash pruritic [Not Recovered/Not Resolved]
  - Abdominal pain upper [Unknown]

NARRATIVE: CASE EVENT DATE: 201812
